FAERS Safety Report 5293140-9 (Version None)
Quarter: 2007Q2

REPORT INFORMATION
  Report Type: 
  Country: None (occurrence: None)
  Receive Date: 20070411
  Receipt Date: 20070409
  Transmission Date: 20071010
  Serious: Yes (Death)
  Sender: FDA-Public Use
  Company Number: US-BRISTOL-MYERS SQUIBB COMPANY-13729611

PATIENT
  Sex: Male

DRUGS (4)
  1. ETOPOSIDE [Suspect]
     Indication: TESTICULAR GERM CELL CANCER
  2. CISPLATIN [Suspect]
     Indication: TESTICULAR GERM CELL CANCER
  3. BLEOMYCIN [Suspect]
     Indication: TESTICULAR GERM CELL CANCER
  4. NEUPOGEN [Concomitant]

REACTIONS (1)
  - NEUTROPENIC SEPSIS [None]
